FAERS Safety Report 6505251-8 (Version None)
Quarter: 2009Q4

REPORT INFORMATION
  Report Type: 
  Country: None (occurrence: None)
  Receive Date: 20091201
  Receipt Date: 20090918
  Transmission Date: 20100525
  Serious: Yes (Hospitalization)
  Sender: FDA-Public Use
  Company Number: 2007-153550-NL

PATIENT
  Age: 40 Year
  Sex: Female
  Weight: 64 kg

DRUGS (4)
  1. NUVARING [Suspect]
     Indication: CONTRACEPTION
     Dosage: 1 DF;VAG
     Route: 067
     Dates: start: 20050801, end: 20061112
  2. EXCEDRIN (MIGRAINE) [Concomitant]
  3. ESTROGEN NOS [Concomitant]
  4. TRIAZOLAM [Concomitant]

REACTIONS (2)
  - CEREBRAL INFARCTION [None]
  - DEEP VEIN THROMBOSIS [None]
